FAERS Safety Report 19820501 (Version 2)
Quarter: 2021Q4

REPORT INFORMATION
  Report Type: Spontaneous
  Country: US (occurrence: US)
  Receive Date: 20210913
  Receipt Date: 20211022
  Transmission Date: 20220303
  Serious: Yes (Hospitalization)
  Sender: FDA-Public Use
  Company Number: US-BIOVITRUM-2021US8254

PATIENT
  Sex: Female
  Weight: 9 kg

DRUGS (9)
  1. SYNAGIS [Suspect]
     Active Substance: PALIVIZUMAB
     Indication: Neonatal respiratory distress syndrome
     Route: 030
     Dates: start: 202011
  2. SYNAGIS [Suspect]
     Active Substance: PALIVIZUMAB
     Indication: Dependence on oxygen therapy
  3. SYNAGIS [Suspect]
     Active Substance: PALIVIZUMAB
     Indication: Trisomy 21
  4. SYNAGIS [Suspect]
     Active Substance: PALIVIZUMAB
     Indication: Low birth weight baby
  5. SYNAGIS [Suspect]
     Active Substance: PALIVIZUMAB
     Indication: Gastrointestinal malformation
  6. SYNAGIS [Suspect]
     Active Substance: PALIVIZUMAB
     Indication: Heart disease congenital
  7. SYNAGIS [Suspect]
     Active Substance: PALIVIZUMAB
     Indication: Bronchopulmonary dysplasia
  8. SYNAGIS [Suspect]
     Active Substance: PALIVIZUMAB
     Indication: Genitourinary symptom
  9. SYNAGIS [Suspect]
     Active Substance: PALIVIZUMAB
     Indication: Congenital small intestinal atresia

REACTIONS (2)
  - Respiratory syncytial virus infection [Unknown]
  - Post procedural fever [Unknown]
